FAERS Safety Report 16874789 (Version 5)
Quarter: 2019Q4

REPORT INFORMATION
  Report Type: Spontaneous
  Country: US (occurrence: US)
  Receive Date: 20191001
  Receipt Date: 20191205
  Transmission Date: 20200122
  Serious: Yes (Other)
  Sender: FDA-Public Use
  Company Number: US-ALLERGAN-1938989US

PATIENT
  Sex: Male

DRUGS (5)
  1. PROSCAR [Concomitant]
     Active Substance: FINASTERIDE
  2. DOXAZOSIN [Concomitant]
     Active Substance: DOXAZOSIN MESYLATE
     Indication: PRODUCT USED FOR UNKNOWN INDICATION
     Route: 065
  3. ZANTAC [Concomitant]
     Active Substance: RANITIDINE HYDROCHLORIDE
     Indication: PRODUCT USED FOR UNKNOWN INDICATION
     Route: 065
  4. DALVANCE [Suspect]
     Active Substance: DALBAVANCIN
     Indication: CELLULITIS
     Dosage: 40-60 CC^S OF THE INITIAL INFUSION
     Route: 042
     Dates: start: 20190920, end: 20190920
  5. TYLENOL [Concomitant]
     Active Substance: ACETAMINOPHEN

REACTIONS (11)
  - Foaming at mouth [Recovered/Resolved]
  - Blood pressure increased [Recovered/Resolved]
  - Dehydration [Recovered/Resolved]
  - Syncope [Recovered/Resolved]
  - Cough [Recovered/Resolved]
  - Hypotension [Recovered/Resolved]
  - Urinary incontinence [Recovered/Resolved]
  - Unresponsive to stimuli [Recovered/Resolved]
  - Anal incontinence [Recovered/Resolved]
  - Incorrect dose administered [Unknown]
  - Anaemia [Unknown]

NARRATIVE: CASE EVENT DATE: 20190920
